FAERS Safety Report 5004735-1 (Version None)
Quarter: 2006Q1

REPORT INFORMATION
  Report Type: 
  Country: None (occurrence: None)
  Receive Date: 20060321
  Receipt Date: 20060206
  Transmission Date: 20060701
  Serious: No
  Sender: FDA-Public Use
  Company Number: 2006US000338

PATIENT
  Age: 71 Year
  Sex: Female

DRUGS (8)
  1. VESICARE [Suspect]
     Indication: POLLAKIURIA
     Dosage: ORAL
     Route: 048
     Dates: start: 20051101, end: 20060101
  2. ATACAND [Concomitant]
  3. VERELAN (VERAPAMIL HYDROCHLORIDE) [Concomitant]
  4. QUININE SULFATE [Concomitant]
  5. EVISTA [Concomitant]
  6. ASACOL [Concomitant]
  7. CALCIUM (CALCIUM) [Concomitant]
  8. PRILOSEC [Concomitant]

REACTIONS (3)
  - DRY MOUTH [None]
  - MUSCLE SPASMS [None]
  - SENSATION OF PRESSURE [None]
